FAERS Safety Report 12761364 (Version 1)
Quarter: 2016Q3

REPORT INFORMATION
  Report Type: Spontaneous
  Country: US (occurrence: US)
  Receive Date: 20160920
  Receipt Date: 20160920
  Transmission Date: 20161109
  Serious: Yes (Other)
  Sender: FDA-Public Use
  Company Number: US-ROCHE-1831672

PATIENT
  Age: 56 Year
  Sex: Female

DRUGS (2)
  1. EPIPEN [Concomitant]
     Active Substance: EPINEPHRINE
  2. XOLAIR [Suspect]
     Active Substance: OMALIZUMAB
     Indication: ASTHMA
     Route: 058
     Dates: start: 201601

REACTIONS (3)
  - Anaphylactic reaction [Unknown]
  - Metrorrhagia [Unknown]
  - Rash [Unknown]

NARRATIVE: CASE EVENT DATE: 20160801
